FAERS Safety Report 5226033-3 (Version None)
Quarter: 2007Q1

REPORT INFORMATION
  Report Type: 
  Country: None (occurrence: None)
  Receive Date: 20070129
  Receipt Date: 20070117
  Transmission Date: 20070707
  Serious: Yes (Life-Threatening)
  Sender: FDA-Public Use
  Company Number: 101120ISR

PATIENT
  Age: 7 Year
  Sex: Male

DRUGS (1)
  1. METHOTREXATE [Suspect]
     Indication: ACUTE LYMPHOCYTIC LEUKAEMIA
     Dosage: (12 MG)
     Route: 037

REACTIONS (10)
  - ARTHRALGIA [None]
  - BONE PAIN [None]
  - DRUG TOXICITY [None]
  - FAECAL INCONTINENCE [None]
  - GAIT DISTURBANCE [None]
  - GUILLAIN-BARRE SYNDROME [None]
  - MENINGISM [None]
  - MICTURITION DISORDER [None]
  - QUADRIPLEGIA [None]
  - URINARY INCONTINENCE [None]
